FAERS Safety Report 5146422-5 (Version None)
Quarter: 2006Q4

REPORT INFORMATION
  Report Type: 
  Country: None (occurrence: None)
  Receive Date: 20061102
  Receipt Date: 20061019
  Transmission Date: 20070319
  Serious: Yes (Other)
  Sender: FDA-Public Use
  Company Number: 2006128910

PATIENT
  Age: 58 Year
  Sex: Female
  Weight: 65.7716 kg

DRUGS (5)
  1. CHANTIX [Suspect]
     Indication: SMOKING CESSATION THERAPY
     Dosage: (0.5 MG)
     Dates: start: 20060901
  2. ALL OTHER THERAPEUTIC PRODUCTS (ALL OTHER THERAPEUTIC PRODUCTS) [Suspect]
  3. GLUCOPHAGE [Concomitant]
  4. ACCURETIC [Concomitant]
  5. CENESTIN [Concomitant]

REACTIONS (4)
  - DRUG INEFFECTIVE [None]
  - GINGIVAL OPERATION [None]
  - LOSS OF CONSCIOUSNESS [None]
  - NAUSEA [None]
